FAERS Safety Report 9018371 (Version 1)
Quarter: 2013Q1

REPORT INFORMATION
  Report Type: Spontaneous
  Country: US (occurrence: None)
  Receive Date: 20130111
  Receipt Date: 20130111
  Transmission Date: 20140127
  Serious: Yes (Other)
  Sender: FDA-Public Use
  Company Number: None

PATIENT
  Age: 30 Year
  Sex: Male
  Weight: 54.43 kg

DRUGS (2)
  1. SINGULAIR [Suspect]
     Indication: ASTHMA
     Dosage: ONE
     Route: 048
     Dates: start: 20100801, end: 20101130
  2. SINGULAIR [Suspect]
     Indication: SEASONAL ALLERGY
     Dosage: ONE
     Route: 048
     Dates: start: 20100801, end: 20101130

REACTIONS (2)
  - Urticaria [None]
  - Mechanical urticaria [None]
